FAERS Safety Report 10224408 (Version 1)
Quarter: 2014Q2

REPORT INFORMATION
  Report Type: Spontaneous
  Country: US (occurrence: US)
  Receive Date: 20140609
  Receipt Date: 20140609
  Transmission Date: 20141212
  Serious: No
  Sender: FDA-Public Use
  Company Number: US-PFIZER INC-2014157378

PATIENT
  Age: 54 Year
  Sex: Female

DRUGS (4)
  1. XANAX [Suspect]
     Dosage: UNK
  2. XANAX [Suspect]
     Dosage: 8 MG, 1X/DAY
  3. XANAX [Suspect]
     Dosage: 4 MG, 1X/DAY
  4. CYMBALTA [Concomitant]
     Indication: BACK DISORDER
     Dosage: UNK

REACTIONS (2)
  - Drug ineffective [Unknown]
  - Malaise [Unknown]
